FAERS Safety Report 25611405 (Version 1)
Quarter: 2025Q3

REPORT INFORMATION
  Report Type: Spontaneous
  Country: US (occurrence: None)
  Receive Date: 20250725
  Receipt Date: 20250725
  Transmission Date: 20251020
  Serious: Yes (Death)
  Sender: FDA-CTU
  Company Number: None

PATIENT
  Age: 48 Year
  Sex: Male
  Weight: 90.7 kg

DRUGS (4)
  1. AMLODIPINE [Suspect]
     Active Substance: AMLODIPINE BESYLATE
     Indication: Hypertension
  2. metoprolol tab 25 mg [Concomitant]
  3. CLONIDINE [Concomitant]
     Active Substance: CLONIDINE
     Dates: start: 20250326
  4. ALBUTEROL SULFATE [Concomitant]
     Active Substance: ALBUTEROL SULFATE
     Dates: start: 20250326

REACTIONS (2)
  - Overdose [None]
  - Suicide attempt [None]

NARRATIVE: CASE EVENT DATE: 20250718
